FAERS Safety Report 21778785 (Version 1)
Quarter: 2022Q4

REPORT INFORMATION
  Report Type: Spontaneous
  Country: FI (occurrence: FI)
  Receive Date: 20221226
  Receipt Date: 20221226
  Transmission Date: 20230113
  Serious: Yes (Other)
  Sender: FDA-Public Use
  Company Number: FI-ADVANZ PHARMA-202212008973

PATIENT

DRUGS (4)
  1. ALFUZOSIN [Suspect]
     Active Substance: ALFUZOSIN
     Indication: Benign prostatic hyperplasia
     Dosage: UNK, QD, XATRAL PROLONGED RELEASE TABLET
     Route: 065
  2. APIXABAN [Suspect]
     Active Substance: APIXABAN
     Dosage: UNK UNK, BID (Q12H)
     Route: 065
  3. LESCOL [Concomitant]
     Active Substance: FLUVASTATIN SODIUM
     Indication: Blood cholesterol abnormal
     Dosage: UNK, DEPOT
  4. ELIQUIS [Concomitant]
     Active Substance: APIXABAN
     Dosage: UNK, BLOOD THINNER

REACTIONS (6)
  - Arrhythmia [Unknown]
  - Asthenia [Unknown]
  - Micturition urgency [Unknown]
  - Hypotension [Unknown]
  - Dizziness [Unknown]
  - Inappropriate schedule of product administration [Unknown]
